FAERS Safety Report 21558168 (Version 1)
Quarter: 2022Q4

REPORT INFORMATION
  Report Type: Spontaneous
  Country: US (occurrence: US)
  Receive Date: 20221107
  Receipt Date: 20221107
  Transmission Date: 20230112
  Serious: No
  Sender: FDA-Public Use
  Company Number: US-ELI_LILLY_AND_COMPANY-US202211002544

PATIENT
  Sex: Female

DRUGS (5)
  1. HUMALOG KWIKPEN [Suspect]
     Active Substance: INSULIN LISPRO
     Indication: Diabetes mellitus
     Dosage: 25 U, EACH MORNING
     Route: 065
  2. HUMALOG KWIKPEN [Suspect]
     Active Substance: INSULIN LISPRO
     Dosage: 25 U, OTHER (AT LUNCH TIME)
     Route: 065
  3. HUMALOG KWIKPEN [Suspect]
     Active Substance: INSULIN LISPRO
     Dosage: 35 U, EACH EVENING
     Route: 065
  4. HUMALOG KWIKPEN [Suspect]
     Active Substance: INSULIN LISPRO
     Dosage: UNK UNK, UNKNOWN
     Route: 065
  5. NOVOLOG [Concomitant]
     Active Substance: INSULIN ASPART
     Indication: Product used for unknown indication

REACTIONS (1)
  - Visual impairment [Unknown]
